FAERS Safety Report 5168019-3 (Version None)
Quarter: 2006Q4

REPORT INFORMATION
  Report Type: 
  Country: None (occurrence: None)
  Receive Date: 20061208
  Receipt Date: 20060223
  Transmission Date: 20070319
  Serious: Yes (Hospitalization)
  Sender: FDA-Public Use
  Company Number: US-GLAXOSMITHKLINE-A0594979A

PATIENT
  Age: 47 Year
  Sex: Female

DRUGS (6)
  1. AVANDAMET [Suspect]
     Route: 048
  2. AVANDIA [Suspect]
     Dosage: 2MG TWICE PER DAY
     Route: 048
     Dates: start: 20051201
  3. METFORMIN [Suspect]
     Dosage: 500MG TWICE PER DAY
     Route: 048
     Dates: start: 20051201
  4. NOVOLOG [Concomitant]
  5. REGLAN [Concomitant]
  6. HYZAAR [Concomitant]

REACTIONS (1)
  - BLOOD GLUCOSE FLUCTUATION [None]
